FAERS Safety Report 11618349 (Version 4)
Quarter: 2017Q2

REPORT INFORMATION
  Report Type: Report from Study
  Country: None (occurrence: BR)
  Receive Date: 20151012
  Receipt Date: 20170530
  Transmission Date: 20170829
  Serious: Yes (Hospitalization, Other)
  Sender: FDA-Public Use
  Company Number: BR-ABBVIE-15K-020-1477676-00

PATIENT
  Age: 31 Year
  Sex: Male
  Weight: 65 kg

DRUGS (2)
  1. HUMIRA [Suspect]
     Active Substance: ADALIMUMAB
     Indication: PSORIASIS
     Route: 058
     Dates: start: 20150520, end: 20151205
  2. METHOTREXATE. [Concomitant]
     Active Substance: METHOTREXATE
     Indication: PSORIASIS
     Route: 048
     Dates: start: 201702

REACTIONS (14)
  - Loss of consciousness [Unknown]
  - Immunodeficiency [Recovering/Resolving]
  - Anxiety [Recovering/Resolving]
  - Cardiomegaly [Recovering/Resolving]
  - Cardio-respiratory arrest [Recovered/Resolved]
  - Arrhythmia [Recovered/Resolved]
  - Myocarditis [Unknown]
  - Memory impairment [Recovering/Resolving]
  - Myalgia [Recovered/Resolved]
  - Myocardial infarction [Not Recovered/Not Resolved]
  - General physical condition abnormal [Unknown]
  - Syncope [Recovering/Resolving]
  - Emotional distress [Recovering/Resolving]
  - Chest pain [Recovered/Resolved]

NARRATIVE: CASE EVENT DATE: 2015
